FAERS Safety Report 19031501 (Version 1)
Quarter: 2021Q1

REPORT INFORMATION
  Report Type: Spontaneous
  Country: US (occurrence: US)
  Receive Date: 20210319
  Receipt Date: 20210319
  Transmission Date: 20210420
  Serious: No
  Sender: FDA-Public Use
  Company Number: US-BEH-2021129604

PATIENT
  Age: 60 Year
  Sex: Male

DRUGS (6)
  1. DOK [Concomitant]
     Active Substance: DOCUSATE SODIUM
  2. TAMSULOSIN [Concomitant]
     Active Substance: TAMSULOSIN
  3. BACLOFEN. [Concomitant]
     Active Substance: BACLOFEN
  4. ASPIRIN [ACETYLSALICYLIC ACID] [Concomitant]
     Active Substance: ASPIRIN
  5. PRIVIGEN [Suspect]
     Active Substance: HUMAN IMMUNOGLOBULIN G
     Dosage: 30 GRAM, QOW, (EVERY TWO WEEKS)
     Route: 042
     Dates: start: 20201128
  6. MODAFINIL. [Concomitant]
     Active Substance: MODAFINIL

REACTIONS (2)
  - Nasal congestion [Not Recovered/Not Resolved]
  - Rash [Not Recovered/Not Resolved]

NARRATIVE: CASE EVENT DATE: 202011
